FAERS Safety Report 5054059-1 (Version None)
Quarter: 2006Q3

REPORT INFORMATION
  Report Type: 
  Country: None (occurrence: None)
  Receive Date: 20060718
  Receipt Date: 20060308
  Transmission Date: 20061208
  Serious: Yes (Death)
  Sender: FDA-Public Use
  Company Number: US-BRISTOL-MYERS SQUIBB COMPANY-13307277

PATIENT
  Age: 78 Year
  Sex: Female

DRUGS (9)
  1. HYDREA [Suspect]
     Indication: ESSENTIAL THROMBOCYTHAEMIA
     Route: 048
     Dates: start: 19920917, end: 20050929
  2. NITROSTAT [Concomitant]
  3. LIBRIUM [Concomitant]
  4. TIAZAC [Concomitant]
  5. COUMADIN [Concomitant]
  6. SYNTHROID [Concomitant]
  7. CODEINE [Concomitant]
  8. CLONIDINE [Concomitant]
  9. LISINOPRIL [Concomitant]

REACTIONS (2)
  - DISEASE PROGRESSION [None]
  - LUNG DISORDER [None]
